FAERS Safety Report 24384574 (Version 1)
Quarter: 2024Q4

REPORT INFORMATION
  Report Type: Spontaneous
  Country: US (occurrence: US)
  Receive Date: 20241001
  Receipt Date: 20241001
  Transmission Date: 20250114
  Serious: No
  Sender: PFIZER
  Company Number: US-PFIZER INC-202400265936

PATIENT
  Age: 74 Year
  Sex: Female
  Weight: 74.39 kg

DRUGS (4)
  1. IBRANCE [Suspect]
     Active Substance: PALBOCICLIB
     Indication: Breast cancer metastatic
     Dosage: 125 MG, CYCLIC (FOR 21 DAYS, THEN 7 DAYS OFF)
     Route: 048
     Dates: start: 202201
  2. LETROZOLE [Suspect]
     Active Substance: LETROZOLE
     Indication: Breast cancer metastatic
     Dosage: UNK, 1X/DAY
     Dates: start: 202201
  3. METOPROLOL SUCCINATE [Concomitant]
     Active Substance: METOPROLOL SUCCINATE
     Indication: Blood pressure measurement
     Dosage: 50 MG, 1X/DAY (IN EVENING)
  4. METOPROLOL [Concomitant]
     Active Substance: METOPROLOL
     Indication: Blood pressure measurement
     Dosage: 50-25MG IN MORNING

REACTIONS (1)
  - Neoplasm progression [Unknown]
